FAERS Safety Report 20097992 (Version 1)
Quarter: 2021Q4

REPORT INFORMATION
  Report Type: Spontaneous
  Country: US (occurrence: None)
  Receive Date: 20211121
  Receipt Date: 20211121
  Transmission Date: 20220303
  Serious: Yes (Disabling)
  Sender: FDA-Public Use
  Company Number: None

PATIENT
  Age: 25 Year
  Sex: Female
  Weight: 62.6 kg

DRUGS (2)
  1. NEXPLANON [Suspect]
     Active Substance: ETONOGESTREL
     Dates: start: 20110622, end: 20170622
  2. IMPLANON [Suspect]
     Active Substance: ETONOGESTREL

REACTIONS (6)
  - Dysmenorrhoea [None]
  - Hypoaesthesia [None]
  - Mental impairment [None]
  - Intentional self-injury [None]
  - Headache [None]
  - Migraine [None]

NARRATIVE: CASE EVENT DATE: 20170622
